FAERS Safety Report 5911004-1 (Version None)
Quarter: 2008Q4

REPORT INFORMATION
  Report Type: 
  Country: None (occurrence: None)
  Receive Date: 20081007
  Receipt Date: 20080929
  Transmission Date: 20090506
  Serious: Yes (Death, Hospitalization)
  Sender: FDA-Public Use
  Company Number: PE-ABBOTT-08P-127-0476662-00

PATIENT
  Sex: Female

DRUGS (1)
  1. HUMIRA [Suspect]
     Indication: RHEUMATOID ARTHRITIS
     Route: 058
     Dates: start: 20080328, end: 20080701

REACTIONS (7)
  - AORTIC STENOSIS [None]
  - IMMUNOSUPPRESSION [None]
  - INTERSTITIAL LUNG DISEASE [None]
  - PULMONARY FIBROSIS [None]
  - PYREXIA [None]
  - RESPIRATORY FAILURE [None]
  - URINARY TRACT INFECTION [None]
